FAERS Safety Report 4431334-2 (Version None)
Quarter: 2004Q3

REPORT INFORMATION
  Report Type: 
  Country: None (occurrence: None)
  Receive Date: 20040820
  Receipt Date: 20040820
  Transmission Date: 20050211
  Serious: No
  Sender: FDA-Public Use
  Company Number: None

PATIENT
  Sex: Male

DRUGS (1)
  1. LACTULOSE [Suspect]
     Dosage: 2 TABLES 2 TIMES
     Dates: start: 20030515, end: 20040802

REACTIONS (5)
  - DYSGEUSIA [None]
  - DYSPHONIA [None]
  - PHARMACEUTICAL PRODUCT COMPLAINT [None]
  - PHARYNGEAL ERYTHEMA [None]
  - SPEECH DISORDER [None]
